FAERS Safety Report 6340769-2 (Version None)
Quarter: 2009Q3

REPORT INFORMATION
  Report Type: 
  Country: None (occurrence: None)
  Receive Date: 20090904
  Receipt Date: 20090826
  Transmission Date: 20100115
  Serious: Yes (Hospitalization, Other)
  Sender: FDA-Public Use
  Company Number: US-NOVOPROD-291096

PATIENT
  Sex: Male

DRUGS (1)
  1. LEVEMIR [Suspect]
     Indication: DIABETES MELLITUS
     Dosage: UNKNOWN
     Route: 058
     Dates: start: 20090801

REACTIONS (1)
  - CHOLELITHIASIS [None]
